FAERS Safety Report 23830104 (Version 1)
Quarter: 2024Q2

REPORT INFORMATION
  Report Type: Spontaneous
  Country: US (occurrence: US)
  Receive Date: 20240508
  Receipt Date: 20240508
  Transmission Date: 20240715
  Serious: No
  Sender: FDA-Public Use
  Company Number: US-JNJFOC-20240464771

PATIENT

DRUGS (1)
  1. TYLENOL 8HR [Suspect]
     Active Substance: ACETAMINOPHEN
     Indication: Analgesic therapy
     Dosage: TOOK 2ND DOSE 10 HOURS OF RELIEF AFTER THE FIRST DOSE.
     Route: 065

REACTIONS (1)
  - Inappropriate schedule of product administration [Unknown]
